FAERS Safety Report 10088974 (Version 1)
Quarter: 2014Q2

REPORT INFORMATION
  Report Type: Report from Study
  Country: IN (occurrence: IN)
  Receive Date: 20140421
  Receipt Date: 20140421
  Transmission Date: 20141212
  Serious: Yes (Death, Hospitalization)
  Sender: FDA-Public Use
  Company Number: PHHY2014IN048037

PATIENT
  Age: 39 Year
  Sex: Female

DRUGS (3)
  1. AFINITOR [Suspect]
     Indication: BREAST CANCER
     Route: 048
     Dates: start: 20140114
  2. AFINITOR [Suspect]
     Dosage: 5 MG, QD
     Route: 048
     Dates: start: 20140217
  3. EXEMESTANE [Concomitant]
     Indication: BREAST CANCER
     Dosage: 25 MG, QD
     Route: 048
     Dates: start: 20131125

REACTIONS (8)
  - Liver disorder [Fatal]
  - Hypokalaemia [Fatal]
  - Ascites [Fatal]
  - Metastases to liver [Fatal]
  - Metastases to lung [Fatal]
  - Asthenia [Unknown]
  - Oral infection [Unknown]
  - Stomatitis [Recovered/Resolved]
